FAERS Safety Report 5257000-1 (Version None)
Quarter: 2007Q1

REPORT INFORMATION
  Report Type: 
  Country: None (occurrence: None)
  Receive Date: 20070307
  Receipt Date: 20070119
  Transmission Date: 20070707
  Serious: No
  Sender: FDA-Public Use
  Company Number: US-GLAXOSMITHKLINE-A0636048A

PATIENT
  Age: 73 Year
  Sex: Female

DRUGS (2)
  1. CONTAC 12 HOUR [Suspect]
     Dates: start: 20070117, end: 20070118
  2. NEXIUM [Concomitant]

REACTIONS (2)
  - EXPIRED DRUG ADMINISTERED [None]
  - GASTROOESOPHAGEAL REFLUX DISEASE [None]
